FAERS Safety Report 7405030 (Version 2)
Quarter: 2013Q1

REPORT INFORMATION
  Report Type: Spontaneous
  Country: GB (occurrence: None)
  Receive Date: 20100524
  Receipt Date: 20130314
  Transmission Date: 20140127
  Serious: Yes (Death)
  Sender: FDA-Public Use
  Company Number: 590034

PATIENT
  Age: 75 Year
  Sex: Female
  Weight: 50 kg

DRUGS (2)
  1. CARBOPLATIN [Suspect]
  2. PACLITAXEL [Suspect]

REACTIONS (2)
  - AORTIC DISSECTION RUPTURE [None]
  - SUDDEN DEATH [None]
